FAERS Safety Report 20820902 (Version 2)
Quarter: 2022Q2

REPORT INFORMATION
  Report Type: Report from Study
  Country: US (occurrence: US)
  Receive Date: 20220512
  Receipt Date: 20220608
  Transmission Date: 20220720
  Serious: No
  Sender: FDA-Public Use
  Company Number: US-NOVARTISTESTPH-NVSC2022US108867

PATIENT
  Age: 8 Year
  Sex: Female

DRUGS (2)
  1. ILARIS [Suspect]
     Active Substance: CANAKINUMAB
     Indication: Juvenile idiopathic arthritis
     Dosage: 140 MG, (EVERY 4 WEEKS)
     Route: 058
     Dates: start: 20220510
  2. ILARIS [Suspect]
     Active Substance: CANAKINUMAB
     Dosage: 140 MG, QMO
     Route: 058
     Dates: end: 20220523

REACTIONS (2)
  - Pain [Unknown]
  - Drug ineffective [Unknown]

NARRATIVE: CASE EVENT DATE: 20220510
